FAERS Safety Report 13564621 (Version 1)
Quarter: 2017Q2

REPORT INFORMATION
  Report Type: Spontaneous
  Country: IR (occurrence: IR)
  Receive Date: 20170519
  Receipt Date: 20170519
  Transmission Date: 20170830
  Serious: Yes (Other)
  Sender: FDA-Public Use
  Company Number: IR-APOPHARMA USA, INC.-2017AP012220

PATIENT
  Age: 24 Month

DRUGS (2)
  1. ALKERAN [Suspect]
     Active Substance: MELPHALAN
     Indication: RETINOBLASTOMA
     Dosage: 10 ?G, OTHER
     Route: 050
  2. BEVACIZUMAB [Suspect]
     Active Substance: BEVACIZUMAB
     Indication: RETINOBLASTOMA
     Dosage: UNK, UNKNOWN
     Route: 050

REACTIONS (2)
  - Retinal haemorrhage [Unknown]
  - Drug intolerance [Unknown]
